FAERS Safety Report 4449101-2 (Version None)
Quarter: 2004Q3

REPORT INFORMATION
  Report Type: 
  Country: None (occurrence: None)
  Receive Date: 20040910
  Receipt Date: 20040824
  Transmission Date: 20050211
  Serious: No
  Sender: FDA-Public Use
  Company Number: 2004230597PL

PATIENT
  Age: 23 Year
  Sex: Female

DRUGS (2)
  1. CYTARABINE [Suspect]
     Indication: ACUTE MYELOID LEUKAEMIA
  2. FARMORUBICIN PFS(EPIRUBICIN HYDROCHLORIDE) SOLUTION, STERILE [Suspect]
     Indication: ACUTE MYELOID LEUKAEMIA

REACTIONS (9)
  - BARTHOLINITIS [None]
  - BLOOD ALKALINE PHOSPHATASE INCREASED [None]
  - BLOOD BILIRUBIN INCREASED [None]
  - BLOOD CULTURE POSITIVE [None]
  - FURUNCLE [None]
  - NEUTROPENIC COLITIS [None]
  - PLATELET COUNT DECREASED [None]
  - PSEUDOMONAS INFECTION [None]
  - TRANSAMINASES INCREASED [None]
